FAERS Safety Report 13375876 (Version 2)
Quarter: 2018Q3

REPORT INFORMATION
  Report Type: Spontaneous
  Country: US (occurrence: US)
  Receive Date: 20170328
  Receipt Date: 20180731
  Transmission Date: 20181010
  Serious: Yes (Other)
  Sender: FDA-Public Use
  Company Number: US-BION-006141

PATIENT
  Age: 82 Year
  Sex: Male
  Weight: 64 kg

DRUGS (1)
  1. ALEVE EASY OPEN ARTHRITIS CAP [Suspect]
     Active Substance: NAPROXEN SODIUM
     Indication: PAIN
     Route: 048
     Dates: start: 2012

REACTIONS (7)
  - Wrong technique in product usage process [Not Recovered/Not Resolved]
  - Rectal haemorrhage [Not Recovered/Not Resolved]
  - Drug prescribing error [Not Recovered/Not Resolved]
  - Incorrect drug administration duration [Not Recovered/Not Resolved]
  - Haemorrhage urinary tract [Not Recovered/Not Resolved]
  - Dysuria [Not Recovered/Not Resolved]
  - Urine flow decreased [Not Recovered/Not Resolved]

NARRATIVE: CASE EVENT DATE: 2012
